FAERS Safety Report 5355196-4 (Version None)
Quarter: 2007Q2

REPORT INFORMATION
  Report Type: 
  Country: None (occurrence: None)
  Receive Date: 20070611
  Receipt Date: 20070529
  Transmission Date: 20071010
  Serious: Yes (Other)
  Sender: FDA-Public Use
  Company Number: CHPA2007US06424

PATIENT
  Age: 45 Year
  Sex: Female
  Weight: 78 kg

DRUGS (2)
  1. VAGISTAT-1 [Suspect]
     Indication: FUNGAL INFECTION
     Dosage: 300 MG, ONCE/SINGLE, VAGINAL
     Route: 067
     Dates: start: 20070527, end: 20070527
  2. PRILOSEC [Concomitant]

REACTIONS (3)
  - CHILLS [None]
  - HEART RATE INCREASED [None]
  - PYREXIA [None]
